FAERS Safety Report 14639620 (Version 1)
Quarter: 2018Q1

REPORT INFORMATION
  Report Type: Report from Study
  Country: GB (occurrence: GB)
  Receive Date: 20180315
  Receipt Date: 20180315
  Transmission Date: 20180509
  Serious: Yes (Hospitalization)
  Sender: FDA-Public Use
  Company Number: GB-ROCHE-2088316

PATIENT
  Age: 56 Year
  Sex: Female

DRUGS (1)
  1. RITUXIMAB. [Suspect]
     Active Substance: RITUXIMAB
     Indication: PRODUCT USED FOR UNKNOWN INDICATION
     Route: 065

REACTIONS (10)
  - Sinus disorder [Unknown]
  - Aphasia [Unknown]
  - Sepsis [Unknown]
  - Delirium [Unknown]
  - Oropharyngeal discomfort [Unknown]
  - Lymphadenopathy [Unknown]
  - Pulmonary embolism [Unknown]
  - Diffuse large B-cell lymphoma [Unknown]
  - Nasal disorder [Unknown]
  - Lymphoma [Unknown]
